FAERS Safety Report 5585252-7 (Version None)
Quarter: 2008Q1

REPORT INFORMATION
  Report Type: 
  Country: None (occurrence: None)
  Receive Date: 20080104
  Receipt Date: 20080104
  Transmission Date: 20080703
  Serious: Yes (Other)
  Sender: FDA-Public Use
  Company Number: None

PATIENT
  Age: 50 Year
  Sex: Female
  Weight: 108.8633 kg

DRUGS (2)
  1. EFFEXOR XR [Suspect]
     Indication: DEPRESSION
     Dosage: 300 MG. 1 DAY PO
     Route: 048
     Dates: start: 20040101, end: 20071201
  2. EFFEXOR XR [Suspect]
     Indication: DEPRESSION
     Dosage: 300 MG. 1 DAY PO
     Route: 048
     Dates: start: 20020101, end: 20071231

REACTIONS (5)
  - DRUG WITHDRAWAL SYNDROME [None]
  - EYE MOVEMENT DISORDER [None]
  - FEELING ABNORMAL [None]
  - PARAESTHESIA [None]
  - TINNITUS [None]
